FAERS Safety Report 5903380-0 (Version None)
Quarter: 2008Q3

REPORT INFORMATION
  Report Type: 
  Country: None (occurrence: None)
  Receive Date: 20080930
  Receipt Date: 20080920
  Transmission Date: 20090109
  Serious: Yes (Other)
  Sender: FDA-Public Use
  Company Number: US-ROCHE-587397

PATIENT
  Sex: Male
  Weight: 102.1 kg

DRUGS (4)
  1. CAPECITABINE [Suspect]
     Route: 048
     Dates: start: 20080624, end: 20080911
  2. GEMZAR [Concomitant]
  3. TARCEVA [Concomitant]
  4. LEVOXYL [Concomitant]

REACTIONS (1)
  - DISEASE PROGRESSION [None]
